FAERS Safety Report 20722640 (Version 1)
Quarter: 2022Q2

REPORT INFORMATION
  Report Type: Spontaneous
  Country: US (occurrence: US)
  Receive Date: 20220419
  Receipt Date: 20220419
  Transmission Date: 20220720
  Serious: Yes (Death, Hospitalization, Other)
  Sender: FDA-Public Use
  Company Number: US-ALKEM LABORATORIES LIMITED-US-ALKEM-2022-03434

PATIENT
  Sex: Male
  Weight: 72.5 kg

DRUGS (1)
  1. COLCHICINE [Suspect]
     Active Substance: COLCHICINE
     Indication: Product used for unknown indication
     Dosage: 18 MILLIGRAM, (APPROXIMATELY 0.248 MG/KG, 30 TABLETS OF COLCHICINE 0.6 MG)
     Route: 065

REACTIONS (4)
  - Multiple organ dysfunction syndrome [Fatal]
  - Renal tubular necrosis [Fatal]
  - Shock [Fatal]
  - Overdose [Fatal]
